FAERS Safety Report 16653836 (Version 2)
Quarter: 2019Q3

REPORT INFORMATION
  Report Type: Spontaneous
  Country: JP (occurrence: JP)
  Receive Date: 20190731
  Receipt Date: 20190909
  Transmission Date: 20191004
  Serious: Yes (Death, Hospitalization, Other)
  Sender: FDA-Public Use
  Company Number: JP-PFIZER INC-2019324552

PATIENT
  Age: 71 Year
  Sex: Female
  Weight: 55 kg

DRUGS (7)
  1. RANMARK [Concomitant]
     Active Substance: DENOSUMAB
     Dosage: 120 MG, 1X/DAY
     Dates: start: 20181001, end: 20190606
  2. IBRANCE [Suspect]
     Active Substance: PALBOCICLIB
     Indication: BREAST CANCER RECURRENT
     Dosage: 125 MG, 1X/DAY
     Dates: start: 20190412, end: 20190418
  3. DENOTAS CHEWABLE [Concomitant]
     Active Substance: CALCIUM CARBONATE\CHOLECALCIFEROL\MAGNESIUM CARBONATE
     Dosage: UNK, 1X/DAY (2 TABLET)
     Dates: start: 20181001, end: 20190625
  4. FASLODEX [Concomitant]
     Active Substance: FULVESTRANT
     Dosage: 500 MG, 1X/DAY
     Dates: start: 20190402, end: 20190606
  5. FERROUS CITRATE NA [Concomitant]
     Active Substance: SODIUM FERROUS CITRATE
     Dosage: 100 MG, 1X/DAY
     Dates: start: 20190418, end: 20190625
  6. IBRANCE [Suspect]
     Active Substance: PALBOCICLIB
     Dosage: 100 MG, 1X/DAY
     Dates: start: 20190509, end: 20190530
  7. IBRANCE [Suspect]
     Active Substance: PALBOCICLIB
     Dosage: 100 MG, 1X/DAY
     Dates: start: 20190606, end: 20190625

REACTIONS (15)
  - Sepsis [Fatal]
  - Blood alkaline phosphatase increased [Unknown]
  - Cardiac failure [Fatal]
  - Platelet count decreased [Unknown]
  - Respiratory distress [Unknown]
  - Aspartate aminotransferase increased [Unknown]
  - Blood lactate dehydrogenase increased [Unknown]
  - Multiple organ dysfunction syndrome [Unknown]
  - Blood creatine phosphokinase increased [Unknown]
  - Alanine aminotransferase increased [Unknown]
  - Blood urea increased [Unknown]
  - C-reactive protein increased [Unknown]
  - Haemoglobin decreased [Unknown]
  - Arthritis bacterial [Unknown]
  - White blood cell count decreased [Unknown]

NARRATIVE: CASE EVENT DATE: 2019
